FAERS Safety Report 4569372-1 (Version None)
Quarter: 2005Q1

REPORT INFORMATION
  Report Type: 
  Country: None (occurrence: None)
  Receive Date: 20050203
  Receipt Date: 20041102
  Transmission Date: 20050727
  Serious: Yes (Other)
  Sender: FDA-Public Use
  Company Number: DE-ROCHE-385102

PATIENT
  Age: 53 Year
  Sex: Male

DRUGS (1)
  1. PEG-INTERFERON ALFA 2A (RO 25-8310) [Suspect]
     Route: 058
     Dates: start: 20031025

REACTIONS (3)
  - ARTICULAR CALCIFICATION [None]
  - CERVICAL ROOT PAIN [None]
  - NEURALGIA [None]
